FAERS Safety Report 16059806 (Version 2)
Quarter: 2019Q2

REPORT INFORMATION
  Report Type: Report from Study
  Country: None (occurrence: FR)
  Receive Date: 20190311
  Receipt Date: 20190419
  Transmission Date: 20190711
  Serious: Yes (Other)
  Sender: FDA-Public Use
  Company Number: FR-ABBVIE-19K-056-2630386-00

PATIENT
  Sex: Female

DRUGS (3)
  1. VENCLYXTO [Suspect]
     Active Substance: VENETOCLAX
     Dosage: WEEK 4 AND WEEK 6
     Route: 048
  2. VENCLYXTO [Suspect]
     Active Substance: VENETOCLAX
     Dosage: WEEK 2
     Route: 048
  3. VENCLYXTO [Suspect]
     Active Substance: VENETOCLAX
     Indication: CHRONIC LYMPHOCYTIC LEUKAEMIA
     Dosage: W 1 (DOSAGE INITIATION)
     Route: 048
     Dates: start: 201809

REACTIONS (2)
  - Off label use [Unknown]
  - Blood uric acid increased [Unknown]
